FAERS Safety Report 18257319 (Version 1)
Quarter: 2020Q3

REPORT INFORMATION
  Report Type: Spontaneous
  Country: AU (occurrence: AU)
  Receive Date: 20200911
  Receipt Date: 20200911
  Transmission Date: 20201103
  Serious: Yes (Hospitalization)
  Sender: FDA-Public Use
  Company Number: AU-MYLANLABS-2020M1077357

PATIENT
  Age: 57 Year
  Sex: Male

DRUGS (4)
  1. LEVETIRACETAM. [Suspect]
     Active Substance: LEVETIRACETAM
     Indication: SEIZURE PROPHYLAXIS
     Dosage: STABLE DOSE
     Route: 065
  2. DEXAMETHASONE. [Suspect]
     Active Substance: DEXAMETHASONE
     Indication: NEUROPSYCHIATRIC SYMPTOMS
     Dosage: DOSE OF 4 MG/DAY WAS BEING USED FOR UNKNOWN INDICATION,
     Route: 065
  3. DEXAMETHASONE. [Suspect]
     Active Substance: DEXAMETHASONE
     Dosage: DOSE WAS INCREASED TO 16 MG/DAY FOR TREATMENT OF NEUROPSYCHIATRIC SYMPTOMS.
     Route: 065
  4. OLANZAPINE. [Suspect]
     Active Substance: OLANZAPINE
     Indication: NEUROPSYCHIATRIC SYMPTOMS
     Route: 065

REACTIONS (7)
  - Agitation [Recovering/Resolving]
  - Treatment failure [Unknown]
  - Neuropsychiatric symptoms [Recovering/Resolving]
  - Delirium [Recovering/Resolving]
  - Paradoxical drug reaction [Recovering/Resolving]
  - Aggression [Recovering/Resolving]
  - Impulsive behaviour [Recovering/Resolving]
